FAERS Safety Report 5151192-0 (Version None)
Quarter: 2006Q4

REPORT INFORMATION
  Report Type: 
  Country: None (occurrence: None)
  Receive Date: 20061115
  Receipt Date: 20060526
  Transmission Date: 20070319
  Serious: Yes (Hospitalization)
  Sender: FDA-Public Use
  Company Number: US-AMGEN-US181040

PATIENT
  Sex: Female
  Weight: 75.8 kg

DRUGS (21)
  1. PANITUMUMAB [Suspect]
     Indication: COLORECTAL CANCER
     Route: 042
     Dates: start: 20060417, end: 20060515
  2. IRINOTECAN HCL [Concomitant]
     Route: 042
     Dates: start: 20060417
  3. FLUOROURACIL [Concomitant]
     Route: 042
     Dates: start: 20060417
  4. LEUCOVORIN CALCIUM [Concomitant]
     Route: 042
     Dates: start: 20060417
  5. VALTREX [Concomitant]
     Route: 065
  6. LOTREL [Concomitant]
     Route: 065
  7. ATENOLOL [Concomitant]
     Route: 065
  8. PREMARIN [Concomitant]
     Route: 065
  9. VICODIN [Concomitant]
     Route: 065
  10. NEURONTIN [Concomitant]
     Route: 065
  11. VITAMIN B6 [Concomitant]
     Route: 065
  12. HYDROCHLOROTHIAZIDE [Concomitant]
     Route: 065
  13. ZOFRAN [Concomitant]
     Route: 065
  14. IMODIUM [Concomitant]
     Route: 065
  15. LOMOTIL [Concomitant]
     Route: 065
  16. AVASTIN [Concomitant]
     Route: 042
     Dates: start: 20060417
  17. LEXAPRO [Concomitant]
     Route: 065
  18. PHENERGAN [Concomitant]
     Route: 065
  19. GABAPENTIN [Concomitant]
     Route: 065
  20. CLINDAMYCIN [Concomitant]
     Route: 061
  21. KAY CIEL DURA-TABS [Concomitant]
     Route: 065

REACTIONS (3)
  - DIARRHOEA [None]
  - MALAISE [None]
  - SMALL INTESTINAL OBSTRUCTION [None]
